FAERS Safety Report 19291467 (Version 5)
Quarter: 2024Q1

REPORT INFORMATION
  Report Type: Spontaneous
  Country: GB (occurrence: GB)
  Receive Date: 20210523
  Receipt Date: 20240223
  Transmission Date: 20240409
  Serious: Yes (Death, Hospitalization, Other)
  Sender: FDA-Public Use
  Company Number: GB-MHRA-EYC 00250326

PATIENT
  Age: 5 Year
  Sex: Male

DRUGS (17)
  1. CARBOPLATIN [Suspect]
     Active Substance: CARBOPLATIN
     Indication: Brain cancer metastatic
     Dosage: HIGH DOSE CONSOLIDATION THERAPY; ;
     Route: 065
  2. VINCRISTINE [Suspect]
     Active Substance: VINCRISTINE
     Indication: Brain cancer metastatic
     Dosage: UNK; CYCLIC (TWO ROUNDS OF CHEMOTHERAPY); ;
     Route: 065
  3. VEPESID [Suspect]
     Active Substance: ETOPOSIDE
     Indication: Brain cancer metastatic
     Dosage: HIGH DOSE CONSOLIDATION THERAPY; ;
     Route: 050
  4. VEPESID [Suspect]
     Active Substance: ETOPOSIDE
     Indication: Brain cancer metastatic
     Dosage: UNK; CYCLIC (TWO ROUNDS OF CHEMOTHERAPY); ;
     Route: 050
  5. LEVETIRACETAM [Concomitant]
     Active Substance: LEVETIRACETAM
  6. APREPITANT [Concomitant]
     Active Substance: APREPITANT
  7. THIOTEPA [Suspect]
     Active Substance: THIOTEPA
     Indication: Brain cancer metastatic
     Dosage: HIGH DOSE CONSOLIDATION THERAPY; ;
     Route: 065
  8. CISPLATIN [Suspect]
     Active Substance: CISPLATIN
     Indication: Brain cancer metastatic
     Dosage: UNK; CYCLIC (TWO ROUNDS OF CHEMOTHERAPY); ;
     Route: 065
  9. LOPERAMIDE [Concomitant]
     Active Substance: LOPERAMIDE
  10. LENOGRASTIM [Concomitant]
     Active Substance: LENOGRASTIM
  11. DESMOPRESSIN [Concomitant]
     Active Substance: DESMOPRESSIN
  12. ONDANSETRON [Concomitant]
     Active Substance: ONDANSETRON
  13. METOCLOPRAMIDE [Concomitant]
     Active Substance: METOCLOPRAMIDE
  14. CYCLOPHOSPHAMIDE [Suspect]
     Active Substance: CYCLOPHOSPHAMIDE
     Indication: Brain cancer metastatic
     Dosage: UNK; CYCLIC (TWO ROUNDS OF CHEMOTHERAPY); ;
     Route: 065
  15. COTRIMOXAZOLE [Concomitant]
     Active Substance: SULFAMETHOXAZOLE\TRIMETHOPRIM
  16. THIOTEPA [Concomitant]
     Active Substance: THIOTEPA
  17. CARBOPLATIN [Concomitant]
     Active Substance: CARBOPLATIN

REACTIONS (14)
  - Haemorrhage intracranial [Fatal]
  - Pain [Fatal]
  - Malignant neoplasm progression [Fatal]
  - Pancytopenia [Fatal]
  - Headache [Fatal]
  - Intestinal prolapse [Fatal]
  - Feeding disorder [Fatal]
  - Illness [Fatal]
  - Mouth ulceration [Fatal]
  - Acute kidney injury [Fatal]
  - Diarrhoea [Fatal]
  - Neutropenic sepsis [Fatal]
  - Seizure [Fatal]
  - Mucosal inflammation [Fatal]

NARRATIVE: CASE EVENT DATE: 20190101
